FAERS Safety Report 8340415-2 (Version None)
Quarter: 2012Q2

REPORT INFORMATION
  Report Type: 
  Country: None (occurrence: None)
  Receive Date: 20120507
  Receipt Date: 20120507
  Transmission Date: 20120825
  Serious: Yes (Hospitalization, Other)
  Sender: FDA-Public Use
  Company Number: None

PATIENT
  Age: 35 Year
  Sex: Female
  Weight: 60.781 kg

DRUGS (1)
  1. AMOXICILLIN [Suspect]
     Indication: ARTHROPOD BITE
     Dosage: |DOSAGETEXT: 500 MG||STRENGTH: 500 MG||FREQ: Q 12 HOURS||ROUTE: ORAL|
     Route: 048
     Dates: start: 20120504, end: 20120504

REACTIONS (1)
  - DRUG HYPERSENSITIVITY [None]
